FAERS Safety Report 15992227 (Version 1)
Quarter: 2019Q1

REPORT INFORMATION
  Report Type: Spontaneous
  Country: FR (occurrence: FR)
  Receive Date: 20190221
  Receipt Date: 20190221
  Transmission Date: 20190418
  Serious: Yes (Hospitalization)
  Sender: FDA-Public Use
  Company Number: FR-TEVA-2019-FR-1014574

PATIENT
  Age: 65 Year
  Sex: Female
  Weight: 55 kg

DRUGS (20)
  1. AUGMENTIN [Suspect]
     Active Substance: AMOXICILLIN\CLAVULANATE POTASSIUM
     Indication: STAPHYLOCOCCAL INFECTION
     Route: 042
     Dates: start: 20181221, end: 20181224
  2. VANCOMYCINE [Suspect]
     Active Substance: VANCOMYCIN
     Indication: KLEBSIELLA INFECTION
     Dosage: 2 GRAM DAILY;
     Route: 042
     Dates: start: 20181221, end: 20181231
  3. IZALGI 500 MG/25 MG, GELULE [Concomitant]
     Active Substance: ACETAMINOPHEN\OPIUM
     Dosage: 1 DF = PARACETAMOL + 500 MG OPIUM (POWDER) 25 MG
     Route: 048
  4. PRAVASTATINE SODIQUE [Concomitant]
     Active Substance: PRAVASTATIN SODIUM
     Route: 048
  5. ORBENINE [Suspect]
     Active Substance: CLOXACILLIN SODIUM
     Indication: STAPHYLOCOCCAL INFECTION
     Dosage: 2 GRAM DAILY;
     Route: 042
     Dates: start: 20181224, end: 20181229
  6. PIPERACILLINE BASE [Suspect]
     Active Substance: PIPERACILLIN SODIUM
     Indication: KLEBSIELLA INFECTION
     Route: 042
     Dates: start: 20181229
  7. RAMIPRIL. [Concomitant]
     Active Substance: RAMIPRIL
  8. AMITRIPTYLINE [Concomitant]
     Active Substance: AMITRIPTYLINE
     Route: 048
  9. GENTAMICINE [Suspect]
     Active Substance: GENTAMICIN
     Indication: STAPHYLOCOCCAL INFECTION
     Route: 042
     Dates: start: 20181221, end: 20181223
  10. LANSOPRAZOLE. [Concomitant]
     Active Substance: LANSOPRAZOLE
     Route: 048
  11. ACTISKENAN 20 MG, GELULE [Concomitant]
     Active Substance: MORPHINE SULFATE
     Route: 048
     Dates: start: 20181221
  12. ENBREL [Concomitant]
     Active Substance: ETANERCEPT
     Route: 048
  13. TAZOBACTAM [Suspect]
     Active Substance: TAZOBACTAM
     Indication: KLEBSIELLA INFECTION
     Route: 042
     Dates: start: 20181229, end: 20181231
  14. DOLIPRANE [Concomitant]
     Active Substance: ACETAMINOPHEN
     Route: 048
  15. PREDNISONE. [Concomitant]
     Active Substance: PREDNISONE
     Route: 048
  16. NABUCOX 1 G, COMPRIME DISPERSIBLE [Concomitant]
     Route: 048
  17. CLARADOL CAFEINE 500 MG/50 MG, COMPRIM? EFFERVESCENT [Concomitant]
     Dosage: 1 DF = PARACETAMOL 500 MG + CAFFEINE 50 MG
     Route: 048
  18. PAROXETINE (CHLORHYDRATE DE) ANHYDRE [Concomitant]
     Active Substance: PAROXETINE
     Route: 048
  19. CALTRATE WITH VITAMIN D [Concomitant]
     Active Substance: CALCIUM CARBONATE\CHOLECALCIFEROL
     Route: 048
  20. LEFLUNOMIDE. [Concomitant]
     Active Substance: LEFLUNOMIDE
     Route: 048

REACTIONS (1)
  - Acute kidney injury [Recovering/Resolving]

NARRATIVE: CASE EVENT DATE: 20181230
